FAERS Safety Report 4561001-6 (Version None)
Quarter: 2005Q1

REPORT INFORMATION
  Report Type: 
  Country: None (occurrence: None)
  Receive Date: 20050126
  Receipt Date: 20040617
  Transmission Date: 20050727
  Serious: No
  Sender: FDA-Public Use
  Company Number: US-BRISTOL-MYERS SQUIBB COMPANY-12618039

PATIENT
  Sex: Male

DRUGS (9)
  1. METFORMIN HCL [Suspect]
     Indication: DIABETES MELLITUS
     Route: 048
     Dates: start: 20040513
  2. GLYBURIDE [Suspect]
     Dates: start: 20040513
  3. GEMFIBROZIL [Suspect]
     Dates: start: 20040417, end: 20040516
  4. ENALAPRIL [Suspect]
     Dates: start: 20040513
  5. ASPIRIN [Suspect]
     Dates: start: 20040513
  6. SELENIUM SULFIDE [Concomitant]
     Route: 061
     Dates: start: 20040214, end: 20040513
  7. TOLNAFTATE [Concomitant]
     Dosage: DOSING: APPLY TWICE DAILY AS NEEDED
     Route: 061
     Dates: start: 20040414
  8. BETAMETHASONE [Concomitant]
     Dosage: DOSE: APPLY 0.25 APPLICATIONS TWICE DAILY
     Route: 061
     Dates: start: 20040513, end: 20040519
  9. MULTI-VITAMIN [Concomitant]

REACTIONS (1)
  - DRUG SCREEN POSITIVE [None]
